FAERS Safety Report 7604453-7 (Version None)
Quarter: 2011Q3

REPORT INFORMATION
  Report Type: 
  Country: None (occurrence: None)
  Receive Date: 20110712
  Receipt Date: 20110704
  Transmission Date: 20111222
  Serious: Yes (Other)
  Sender: FDA-Public Use
  Company Number: PHHY2011GB59061

PATIENT
  Age: 32 Year
  Sex: Female

DRUGS (6)
  1. METHOTREXATE [Suspect]
     Dosage: 12.5 MG, QW
     Route: 048
     Dates: start: 20110523, end: 20110613
  2. COCOIS [Concomitant]
     Route: 061
  3. DOUBLEBASE [Concomitant]
     Route: 061
  4. BETNOVATE [Concomitant]
     Route: 061
  5. CLOBETASONE [Concomitant]
     Route: 061
  6. DOVOBET [Concomitant]
     Route: 061

REACTIONS (5)
  - PANIC REACTION [None]
  - DIZZINESS [None]
  - PRODUCT SUBSTITUTION ISSUE [None]
  - DYSKINESIA [None]
  - ASTHENIA [None]
